FAERS Safety Report 8902475 (Version 1)
Quarter: 2012Q4

REPORT INFORMATION
  Report Type: 
  Country: IT (occurrence: IT)
  Receive Date: 20121112
  Receipt Date: 20121112
  Transmission Date: 20130627
  Serious: Yes (Hospitalization)
  Sender: FDA-Public Use
  Company Number: IT-BAYER-2012-116265

PATIENT
  Age: 85 Year
  Sex: Female

DRUGS (9)
  1. CARDIOASPIRIN [Suspect]
     Dosage: 100 mg, QD
     Route: 048
     Dates: start: 20030101, end: 20121026
  2. LASIX [Concomitant]
     Dosage: Daily dose 50 mg
     Route: 048
  3. CALCIUM SANDOZ [CALCIUM GLUCONATE] [Concomitant]
     Dosage: Daily dose 1000 mg
     Route: 048
  4. SINVACOR [Concomitant]
     Dosage: Daily dose 10 mg
     Route: 048
  5. DRONAL [Concomitant]
     Dosage: Daily dose 70 mg
     Route: 048
  6. PRETERAX [Concomitant]
     Dosage: Daily dose 6.25 mg
     Route: 048
  7. COLECALCIFEROL [Concomitant]
     Dosage: 20 gtt, UNK
     Route: 048
  8. DAFLON [DIOSMIN] [Concomitant]
     Dosage: Daily dose 500 mg
     Route: 048
  9. FERLIXIT [Concomitant]
     Dosage: Daily dose 62.5 mg

REACTIONS (5)
  - Tremor [Recovering/Resolving]
  - Confusional state [Recovering/Resolving]
  - Muscular weakness [Recovering/Resolving]
  - Dysarthria [Recovering/Resolving]
  - Cerebral haemorrhage [Recovering/Resolving]
